FAERS Safety Report 8499795-X (Version None)
Quarter: 2012Q3

REPORT INFORMATION
  Report Type: 
  Country: None (occurrence: None)
  Receive Date: 20120710
  Receipt Date: 20120702
  Transmission Date: 20120928
  Serious: Yes (Hospitalization)
  Sender: FDA-Public Use
  Company Number: US-UCBSA-8052716

PATIENT
  Age: 50 Year
  Sex: Female
  Weight: 65.77 kg

DRUGS (3)
  1. IMURAN [Suspect]
     Indication: CROHN'S DISEASE
  2. IMURAN [Suspect]
     Dates: start: 20090101
  3. CIMZIA [Suspect]
     Indication: CROHN'S DISEASE
     Route: 058
     Dates: start: 20090610

REACTIONS (1)
  - URINARY TRACT INFECTION [None]
